FAERS Safety Report 5007174-2 (Version None)
Quarter: 2006Q1

REPORT INFORMATION
  Report Type: 
  Country: None (occurrence: None)
  Receive Date: 20060327
  Receipt Date: 20060109
  Transmission Date: 20060701
  Serious: Yes (Life-Threatening)
  Sender: FDA-Public Use
  Company Number: 220913

PATIENT
  Age: 50 Year
  Sex: Female
  Weight: 86 kg

DRUGS (3)
  1. AVASTIN [Suspect]
     Indication: BREAST CANCER METASTATIC
     Dosage: 870 MG, Q2W, INTRAVENOUS
     Route: 042
     Dates: start: 20051003, end: 20051114
  2. GEMCITABINE [Concomitant]
  3. LIPITOR [Concomitant]

REACTIONS (2)
  - HYPERTENSION [None]
  - LEFT VENTRICULAR FAILURE [None]
